FAERS Safety Report 17429847 (Version 10)
Quarter: 2021Q3

REPORT INFORMATION
  Report Type: Spontaneous
  Country: US (occurrence: US)
  Receive Date: 20200218
  Receipt Date: 20210716
  Transmission Date: 20211014
  Serious: Yes (Other)
  Sender: FDA-Public Use
  Company Number: US-PFIZER INC-2018113547

PATIENT
  Age: 71 Year
  Sex: Female
  Weight: 75 kg

DRUGS (7)
  1. LYRICA [Suspect]
     Active Substance: PREGABALIN
     Indication: NERVE INJURY
     Dosage: 75 MG, THREE TIMES A DAY
     Route: 048
     Dates: start: 201710
  2. OXYCODONE [Concomitant]
     Active Substance: OXYCODONE
     Indication: PAIN
     Dosage: 10 MG THREE TIMES A DAY
  3. LYRICA [Suspect]
     Active Substance: PREGABALIN
     Indication: PAIN
     Dosage: 300 MG DAILY (75MG 1 CAPSULE IN AM, 1 AT NOON TIME AND 2 AT BED TIME)
     Route: 048
     Dates: start: 201803
  4. LYRICA [Suspect]
     Active Substance: PREGABALIN
     Indication: SCOLIOSIS SURGERY
  5. LYRICA [Suspect]
     Active Substance: PREGABALIN
     Indication: SPINAL FUSION SURGERY
  6. LYRICA [Suspect]
     Active Substance: PREGABALIN
     Indication: ROAD TRAFFIC ACCIDENT
  7. PLAQUENIL S [Concomitant]
     Active Substance: HYDROXYCHLOROQUINE SULFATE
     Indication: SYSTEMIC LUPUS ERYTHEMATOSUS
     Dosage: 200 MG, TWICE A DAY

REACTIONS (5)
  - Upper limb fracture [Unknown]
  - Dysgraphia [Unknown]
  - Intentional product misuse [Unknown]
  - Blindness [Unknown]
  - Neck pain [Unknown]
